FAERS Safety Report 18865226 (Version 1)
Quarter: 2021Q1

REPORT INFORMATION
  Report Type: Spontaneous
  Country: US (occurrence: US)
  Receive Date: 20210208
  Receipt Date: 20210208
  Transmission Date: 20210420
  Serious: Yes (Hospitalization)
  Sender: FDA-Public Use
  Company Number: None

PATIENT
  Sex: Male

DRUGS (8)
  1. PRAMIPEXOLE. [Suspect]
     Active Substance: PRAMIPEXOLE
  2. SERTRALINE [Suspect]
     Active Substance: SERTRALINE HYDROCHLORIDE
  3. DESCOVY [Suspect]
     Active Substance: EMTRICITABINE\TENOFOVIR ALAFENAMIDE FUMARATE
     Dosage: ?          OTHER DOSE:1 TAB;?
     Route: 048
     Dates: start: 20200624
  4. TRUVADA [Suspect]
     Active Substance: EMTRICITABINE\TENOFOVIR DISOPROXIL FUMARATE
     Indication: PRODUCT USED FOR UNKNOWN INDICATION
     Route: 048
     Dates: start: 20160306, end: 20200623
  5. BUT/APAP/CAF [Concomitant]
  6. VITAMIN D [Suspect]
     Active Substance: VITAMIN D NOS
  7. ALPRAZOLAM. [Suspect]
     Active Substance: ALPRAZOLAM
  8. HYDROCO/APAP [Suspect]
     Active Substance: ACETAMINOPHEN\HYDROCODONE

REACTIONS (2)
  - Renal injury [None]
  - Product substitution issue [None]
